FAERS Safety Report 7741979-X (Version None)
Quarter: 2011Q3

REPORT INFORMATION
  Report Type: 
  Country: None (occurrence: None)
  Receive Date: 20110912
  Receipt Date: 20110905
  Transmission Date: 20111222
  Serious: Yes (Death)
  Sender: FDA-Public Use
  Company Number: DE-JNJFOC-20070302457

PATIENT
  Age: 75 Year
  Sex: Female

DRUGS (4)
  1. HALDOL [Suspect]
     Indication: ILL-DEFINED DISORDER
     Route: 048
     Dates: start: 20061119, end: 20061123
  2. ATACAND [Concomitant]
     Route: 048
  3. LORAZEPAM [Suspect]
     Indication: ILL-DEFINED DISORDER
     Route: 048
     Dates: start: 20061118, end: 20061123
  4. UNACID [Concomitant]
     Route: 065

REACTIONS (1)
  - CEREBRAL HAEMORRHAGE [None]
